FAERS Safety Report 9234212 (Version 2)
Quarter: 2013Q2

REPORT INFORMATION
  Report Type: Spontaneous
  Country: BR (occurrence: BR)
  Receive Date: 20130416
  Receipt Date: 20130430
  Transmission Date: 20140414
  Serious: Yes (Other)
  Sender: FDA-Public Use
  Company Number: PHHY2013BR036043

PATIENT
  Sex: Female

DRUGS (6)
  1. DIOVAN TRIPLE [Suspect]
     Dosage: 1 DF (160/5/12.5MG), DAILY
  2. LEVOTHYROXINE [Suspect]
     Dosage: 75 UG, ONCE A DAY
  3. MAGNESIUM CHLORIDE [Suspect]
     Dosage: UNK UKN, UNK
  4. ROSULIB [Suspect]
     Dosage: 1 DF, DAILY
  5. CONCOR [Suspect]
     Dosage: 1DF (5 MG),  DAILY
  6. ASPIRINA PREVENT [Suspect]
     Dosage: 2 DF (100 MG), AT LUNCH
     Route: 048

REACTIONS (1)
  - Osteoarthritis [Unknown]
